FAERS Safety Report 7597762-1 (Version None)
Quarter: 2011Q3

REPORT INFORMATION
  Report Type: 
  Country: None (occurrence: None)
  Receive Date: 20110708
  Receipt Date: 20110629
  Transmission Date: 20111222
  Serious: Yes (Other)
  Sender: FDA-Public Use
  Company Number: IT-GLAXOSMITHKLINE-B0731456A

PATIENT

DRUGS (2)
  1. LAPATINIB [Suspect]
     Indication: BREAST CANCER METASTATIC
     Dosage: 1250MG PER DAY
     Route: 048
     Dates: start: 20100719
  2. XELODA [Concomitant]
     Dosage: 2000MG PER DAY
     Route: 048
     Dates: start: 20100719, end: 20100826

REACTIONS (4)
  - SKIN TOXICITY [None]
  - SKIN CHAPPED [None]
  - SKIN HAEMORRHAGE [None]
  - GRANULOMA [None]
